FAERS Safety Report 6056154-7 (Version None)
Quarter: 2009Q1

REPORT INFORMATION
  Report Type: 
  Country: None (occurrence: None)
  Receive Date: 20090129
  Receipt Date: 20090116
  Transmission Date: 20090719
  Serious: Yes (Death)
  Sender: FDA-Public Use
  Company Number: US-RANBAXY-2009RR-21213

PATIENT
  Age: 55 Year
  Sex: Male

DRUGS (5)
  1. METHADONE [Suspect]
     Indication: DRUG ABUSE
     Route: 048
  2. AMITRIPTYLINE [Suspect]
     Indication: DRUG ABUSE
     Route: 048
  3. COCAINE [Suspect]
     Indication: DRUG ABUSE
     Route: 048
  4. DIPHENHYDRAMINE HCL [Suspect]
     Indication: DRUG ABUSE
     Route: 048
  5. CYCLOBENZAPRINE HCL [Suspect]
     Indication: DRUG ABUSE
     Route: 048

REACTIONS (1)
  - DRUG ABUSE [None]
